FAERS Safety Report 11646391 (Version 1)
Quarter: 2015Q4

REPORT INFORMATION
  Report Type: Spontaneous
  Country: US (occurrence: US)
  Receive Date: 20151020
  Receipt Date: 20151020
  Transmission Date: 20160304
  Serious: No
  Sender: FDA-Public Use
  Company Number: US-ROCHE-1621490

PATIENT
  Sex: Female
  Weight: 55.39 kg

DRUGS (1)
  1. ESBRIET [Suspect]
     Active Substance: PIRFENIDONE
     Indication: IDIOPATHIC PULMONARY FIBROSIS
     Dosage: 2 CAPS 534 MG TID/ TOTAL OF 1602 MG DAILY
     Route: 048
     Dates: start: 20150316

REACTIONS (1)
  - Headache [Unknown]
